FAERS Safety Report 13459587 (Version 2)
Quarter: 2017Q4

REPORT INFORMATION
  Report Type: Report from Study
  Country: None (occurrence: GB)
  Receive Date: 20170419
  Receipt Date: 20171102
  Transmission Date: 20180320
  Serious: Yes (Other)
  Sender: FDA-Public Use
  Company Number: GB-ABBVIE-17K-167-1947720-00

PATIENT
  Sex: Female

DRUGS (1)
  1. HUMIRA [Suspect]
     Active Substance: ADALIMUMAB
     Indication: PSORIASIS
     Route: 058

REACTIONS (3)
  - Contusion [Unknown]
  - Rib fracture [Unknown]
  - Fall [Unknown]

NARRATIVE: CASE EVENT DATE: 2017
